FAERS Safety Report 21526972 (Version 1)
Quarter: 2022Q4

REPORT INFORMATION
  Report Type: Report from Study
  Country: US (occurrence: US)
  Receive Date: 20221031
  Receipt Date: 20221031
  Transmission Date: 20230113
  Serious: No
  Sender: FDA-Public Use
  Company Number: US-NOVARTISTESTPH-NVSC2022US242954

PATIENT
  Sex: Female
  Weight: 119.29 kg

DRUGS (1)
  1. TREPROSTINIL SODIUM [Suspect]
     Active Substance: TREPROSTINIL SODIUM
     Indication: Hypertension
     Dosage: 66.7 ( NG/KG/ MIN)
     Route: 058
     Dates: start: 20220806

REACTIONS (1)
  - Infection [Unknown]
